FAERS Safety Report 6709041-2 (Version None)
Quarter: 2010Q2

REPORT INFORMATION
  Report Type: 
  Country: None (occurrence: None)
  Receive Date: 20100504
  Receipt Date: 20100430
  Transmission Date: 20101027
  Serious: Yes (Other)
  Sender: FDA-Public Use
  Company Number: DK-BAYER-201023550GPV

PATIENT
  Age: 47 Year
  Sex: Female
  Weight: 69 kg

DRUGS (4)
  1. NEXAVAR [Suspect]
     Indication: RENAL CANCER METASTATIC
     Dosage: TOTAL DAILY DOSE: 1000 MG
     Route: 048
     Dates: start: 20071008, end: 20081125
  2. SUTENT [Suspect]
     Indication: RENAL CELL CARCINOMA
     Dosage: 25 MILLIGRAM(S)
     Route: 048
     Dates: start: 20081222, end: 20090831
  3. SALAZOPYRIN [Concomitant]
     Indication: ARTHRITIS
     Dosage: 500 MILLIGRAM(S)
     Route: 048
     Dates: start: 20040101
  4. OPTINATE [Concomitant]
     Indication: OSTEOPOROSIS
     Dosage: TOTAL DAILY DOSE: 35 MG
     Route: 048

REACTIONS (1)
  - LYMPHOMA [None]
